FAERS Safety Report 13263801 (Version 1)
Quarter: 2017Q1

REPORT INFORMATION
  Report Type: Spontaneous
  Country: US (occurrence: US)
  Receive Date: 20170222
  Receipt Date: 20170222
  Transmission Date: 20170428
  Serious: Yes (Disabling, Other)
  Sender: FDA-Public Use
  Company Number: None

PATIENT
  Age: 5 Year
  Sex: Male
  Weight: 18.9 kg

DRUGS (1)
  1. MIRALAX [Suspect]
     Active Substance: POLYETHYLENE GLYCOL 3350
     Indication: GASTROINTESTINAL DISORDER
     Dosage: ?          QUANTITY:2 CAPSULE(S);?
     Route: 048
     Dates: start: 20151219, end: 20160723

REACTIONS (8)
  - Emotional disorder [None]
  - Amnesia [None]
  - Obsessive-compulsive disorder [None]
  - Aggression [None]
  - Tearfulness [None]
  - Memory impairment [None]
  - Irritability [None]
  - Anger [None]

NARRATIVE: CASE EVENT DATE: 20160723
